FAERS Safety Report 10010195 (Version 2)
Quarter: 2014Q1

REPORT INFORMATION
  Report Type: Spontaneous
  Country: US (occurrence: US)
  Receive Date: 20140312
  Receipt Date: 20140312
  Transmission Date: 20141002
  Serious: Yes (Other)
  Sender: FDA-Public Use
  Company Number: US-INCYTE CORPORATION-2013IN001485

PATIENT
  Age: 64 Year
  Sex: Female

DRUGS (4)
  1. JAKAFI [Suspect]
     Indication: MYELOFIBROSIS
     Dosage: 10 MG, BID
     Route: 048
     Dates: start: 201305, end: 20130628
  2. JAKAFI [Suspect]
     Dosage: 5 MG, BID
     Route: 048
     Dates: start: 2013
  3. BLOOD PRESSURE MEDICATION [Concomitant]
  4. ATENOLOL [Concomitant]

REACTIONS (2)
  - Platelet count decreased [Recovering/Resolving]
  - Anaemia [Unknown]
